FAERS Safety Report 16034415 (Version 4)
Quarter: 2019Q2

REPORT INFORMATION
  Report Type: Spontaneous
  Country: US (occurrence: US)
  Receive Date: 20190305
  Receipt Date: 20190418
  Transmission Date: 20190711
  Serious: Yes (Other)
  Sender: FDA-Public Use
  Company Number: US-PFIZER INC-2019088259

PATIENT
  Age: 73 Year
  Sex: Female
  Weight: 58.5 kg

DRUGS (3)
  1. SILDENAFIL CITRATE. [Suspect]
     Active Substance: SILDENAFIL CITRATE
     Dosage: UNK
  2. VERAPAMIL [Concomitant]
     Active Substance: VERAPAMIL HYDROCHLORIDE
     Dosage: UNK
  3. TYVASO [Suspect]
     Active Substance: TREPROSTINIL
     Indication: PULMONARY ARTERIAL HYPERTENSION
     Dosage: UNK, 4X/DAY (3-9 BREATHS INHALED)
     Route: 055
     Dates: start: 20190205

REACTIONS (8)
  - Heart rate irregular [Unknown]
  - Dyspnoea exertional [Unknown]
  - Productive cough [Unknown]
  - Headache [Unknown]
  - Cough [Unknown]
  - Fall [Recovered/Resolved]
  - Abdominal distension [Unknown]
  - Hypersensitivity [Unknown]

NARRATIVE: CASE EVENT DATE: 201902
